FAERS Safety Report 10412188 (Version 1)
Quarter: 2014Q2

REPORT INFORMATION
  Report Type: Spontaneous
  Country: US (occurrence: None)
  Receive Date: 20140604
  Receipt Date: 20140604
  Transmission Date: 20141212
  Serious: Yes (Other)
  Sender: FDA-Public Use
  Company Number: 163-POMAL-14030249

PATIENT
  Age: 83 Year
  Sex: Male

DRUGS (13)
  1. POMALYST (POMALIDOMIDE) (4 MILLIGRAM, CAPSULES) [Suspect]
     Indication: PLASMA CELL MYELOMA
     Dosage: 21 IN 21 D
     Route: 048
     Dates: start: 201402, end: 201402
  2. SIMVASTATIN(SIMVASTATIN)(UNKNOWN) [Concomitant]
  3. AMLODIPINE(AMLODIPINE)(UNKNOWN) [Concomitant]
  4. NADOLOL(NADOLOL)(UNKNOWN) [Concomitant]
  5. DEXAMETHASONE(DEXAMETHASONE)(UNKNOWN) [Concomitant]
  6. HYDROCODONE/APAP(VICODIN)(UNKNOWN)? [Concomitant]
  7. ONDANSETRON(ONDANSETRON)(UNKNOWN)? [Concomitant]
  8. WARFARIN(WARFARIN) (UNKNOWN)? [Concomitant]
  9. LIDODERM(LIDOCAINE)(UNKNOWN) [Concomitant]
  10. ACYCLOVIR(ACICLOVIR)(UNKNOWN) [Concomitant]
  11. FUROSEMIDE(FUROSEMIDE)(UNKNOWN) [Concomitant]
  12. LYRICA(PREGABALIN)(UNKNOWN) [Concomitant]
  13. KCL(POTASSIUM CHLORIDE)(UNKNOWN) [Concomitant]

REACTIONS (1)
  - Erythema [None]
